FAERS Safety Report 14453641 (Version 13)
Quarter: 2019Q1

REPORT INFORMATION
  Report Type: Spontaneous
  Country: CA (occurrence: CA)
  Receive Date: 20180129
  Receipt Date: 20190122
  Transmission Date: 20190417
  Serious: Yes (Other)
  Sender: FDA-Public Use
  Company Number: CA-CELLTRION INC.-2017CA004752

PATIENT

DRUGS (22)
  1. INFLECTRA [Suspect]
     Active Substance: INFLIXIMAB-DYYB
     Dosage: 8 MG/KG, EVERY 6 WEEKS
     Route: 042
     Dates: start: 20180528
  2. INFLECTRA [Suspect]
     Active Substance: INFLIXIMAB-DYYB
     Dosage: UNK, EVERY 6 WEEKS
     Route: 065
  3. INFLECTRA [Suspect]
     Active Substance: INFLIXIMAB-DYYB
     Dosage: 8 MG/KG, EVERY 6 WEEKS
     Route: 042
     Dates: start: 20181004
  4. CONCERTA [Concomitant]
     Active Substance: METHYLPHENIDATE HYDROCHLORIDE
     Dosage: UNK
  5. INFLECTRA [Suspect]
     Active Substance: INFLIXIMAB-DYYB
     Dosage: 370 MG, EVERY 8 WEEKS
     Route: 042
     Dates: start: 20180119, end: 20180119
  6. INFLECTRA [Suspect]
     Active Substance: INFLIXIMAB-DYYB
     Dosage: 5 MG/KG, EVERY 8 WEEKS
     Route: 042
  7. INFLECTRA [Suspect]
     Active Substance: INFLIXIMAB-DYYB
     Dosage: 370 MG, EVERY 6 WEEKS
     Route: 042
     Dates: start: 20180305, end: 20180419
  8. INFLECTRA [Suspect]
     Active Substance: INFLIXIMAB-DYYB
     Dosage: 370 MG, EVERY 6 WEEKS
     Route: 042
     Dates: start: 20180419
  9. INFLECTRA [Suspect]
     Active Substance: INFLIXIMAB-DYYB
     Dosage: 8 MG/KG, EVERY 6 WEEKS
     Route: 042
     Dates: start: 20181004
  10. PLAQUENIL                          /00072602/ [Concomitant]
     Active Substance: HYDROXYCHLOROQUINE DIPHOSPHATE
     Dosage: 300 MG, DAILY
     Route: 065
     Dates: start: 201210
  11. DEXILANT [Concomitant]
     Active Substance: DEXLANSOPRAZOLE
     Dosage: UNK
     Route: 065
  12. HUMIRA [Concomitant]
     Active Substance: ADALIMUMAB
     Dosage: UNK, 1/WEEK
     Route: 065
     Dates: start: 201501, end: 20170404
  13. INFLECTRA [Suspect]
     Active Substance: INFLIXIMAB-DYYB
     Indication: PSORIATIC ARTHROPATHY
     Dosage: 240 MG, EVERY 0, 2, 6 WEEKS, THEN EVERY 8 WEEKS FOR 12 MONTHS
     Route: 042
     Dates: start: 20170418, end: 20171120
  14. LYRICA [Suspect]
     Active Substance: PREGABALIN
     Dosage: UNK
     Route: 065
  15. INFLECTRA [Suspect]
     Active Substance: INFLIXIMAB-DYYB
     Dosage: 8 MG/KG, EVERY 6 WEEKS
     Route: 042
     Dates: start: 20180823
  16. ARAVA [Concomitant]
     Active Substance: LEFLUNOMIDE
     Dosage: 20 MG, DAILY
     Route: 065
     Dates: start: 201408
  17. INFLECTRA [Suspect]
     Active Substance: INFLIXIMAB-DYYB
     Dosage: 8 MG/KG, EVERY 6 WEEKS
     Route: 042
     Dates: start: 20180823
  18. INFLECTRA [Suspect]
     Active Substance: INFLIXIMAB-DYYB
     Dosage: 8 MG/KG, EVERY 6 WEEKS
     Route: 042
     Dates: start: 20181113
  19. VOLTAREN [Concomitant]
     Active Substance: DICLOFENAC SODIUM
     Dosage: UNK
     Route: 065
  20. FLEXERIL [Concomitant]
     Active Substance: CYCLOBENZAPRINE HYDROCHLORIDE
     Dosage: UNK
     Route: 065
  21. CYMBALTA [Concomitant]
     Active Substance: DULOXETINE HYDROCHLORIDE
     Dosage: UNK
  22. VALTREX [Concomitant]
     Active Substance: VALACYCLOVIR HYDROCHLORIDE
     Dosage: UNK

REACTIONS (26)
  - Pruritus [Recovered/Resolved]
  - Psoriatic arthropathy [Unknown]
  - Pneumonia [Recovering/Resolving]
  - Vascular rupture [Unknown]
  - Peripheral swelling [Unknown]
  - Condition aggravated [Unknown]
  - Infusion related reaction [Unknown]
  - Musculoskeletal stiffness [Not Recovered/Not Resolved]
  - Therapeutic response shortened [Not Recovered/Not Resolved]
  - Sluggishness [Not Recovered/Not Resolved]
  - Drug effect decreased [Unknown]
  - Paraesthesia [Unknown]
  - Heart rate irregular [Unknown]
  - Back pain [Unknown]
  - Product use issue [Unknown]
  - Product use issue [Unknown]
  - Skin disorder [Unknown]
  - Skin atrophy [Unknown]
  - Rash macular [Unknown]
  - Pruritus [Recovered/Resolved]
  - Weight decreased [Unknown]
  - Synovitis [Not Recovered/Not Resolved]
  - Pain [Not Recovered/Not Resolved]
  - Fatigue [Unknown]
  - Hyperaesthesia [Unknown]
  - Arthralgia [Unknown]

NARRATIVE: CASE EVENT DATE: 20170428
